FAERS Safety Report 9819999 (Version 1)
Quarter: 2013Q3

REPORT INFORMATION
  Report Type: Spontaneous
  Country: US (occurrence: None)
  Receive Date: 20130924
  Receipt Date: 20130924
  Transmission Date: 20140515
  Serious: Yes (Other)
  Sender: FDA-Public Use
  Company Number: 2013000227

PATIENT
  Sex: Female

DRUGS (1)
  1. OSPHENA [Suspect]
     Indication: PRODUCT USED FOR UNKNOWN INDICATION
     Dates: start: 20130724, end: 201307

REACTIONS (5)
  - Abdominal discomfort [None]
  - Nausea [None]
  - Diarrhoea [None]
  - Flatulence [None]
  - Abdominal distension [None]
